FAERS Safety Report 9959340 (Version 1)
Quarter: 2014Q1

REPORT INFORMATION
  Report Type: Spontaneous
  Country: AU (occurrence: AU)
  Receive Date: 20140305
  Receipt Date: 20140305
  Transmission Date: 20141002
  Serious: Yes (Hospitalization)
  Sender: FDA-Public Use
  Company Number: AU-AMGEN-AUSSP2014013390

PATIENT
  Age: 66 Year
  Sex: Male

DRUGS (6)
  1. XGEVA [Suspect]
     Indication: METASTASES TO BONE
     Route: 065
  2. DOCETAXEL [Concomitant]
     Indication: PROSTATE CANCER METASTATIC
     Dosage: 150 MG, UNK
  3. LENALIDOMIDE [Concomitant]
     Indication: PROSTATE CANCER METASTATIC
     Dosage: 25 MG, QD
     Route: 065
  4. OXYCONTIN [Concomitant]
     Dosage: 10 MG, BID
  5. ENALAPRIL [Concomitant]
     Dosage: 20 MG, MANE
  6. POTASSIUM CHLORIDE [Concomitant]
     Dosage: 600 MG, TID

REACTIONS (7)
  - Oedema peripheral [Recovering/Resolving]
  - Prerenal failure [Unknown]
  - Dehydration [Recovering/Resolving]
  - Paraesthesia [Not Recovered/Not Resolved]
  - Pain [Not Recovered/Not Resolved]
  - Hypocalcaemia [Recovered/Resolved]
  - Electrocardiogram QT prolonged [Unknown]
